FAERS Safety Report 7529076-X (Version None)
Quarter: 2011Q2

REPORT INFORMATION
  Report Type: 
  Country: None (occurrence: None)
  Receive Date: 20110607
  Receipt Date: 20110530
  Transmission Date: 20111010
  Serious: Yes (Other)
  Sender: FDA-Public Use
  Company Number: US-PFIZER INC-2011116893

PATIENT
  Sex: Male

DRUGS (8)
  1. MAGNESIUM GLYCINATE [Concomitant]
     Indication: VITAMIN SUPPLEMENTATION
     Dosage: 200 MG, UNK
  2. CHAPSTICK LIP BALM [Suspect]
     Dosage: UNK
     Dates: start: 20110518, end: 20110501
  3. PHENOBARBITAL [Concomitant]
     Indication: CONVULSION
  4. CHAPSTICK LIP BALM [Suspect]
     Dosage: UNK
     Dates: start: 20050101
  5. TOPAMAX [Concomitant]
     Indication: CONVULSION
  6. VITAMIN D [Concomitant]
     Indication: MEDICAL DIET
  7. OMEGA-3 TRIGLYCERIDES [Concomitant]
  8. DUPHALAC [Concomitant]
     Dosage: 100 MG, 3X/DAY

REACTIONS (3)
  - COMA [None]
  - APPLICATION SITE ERYTHEMA [None]
  - EPILEPSY [None]
